FAERS Safety Report 5343387-8 (Version None)
Quarter: 2007Q2

REPORT INFORMATION
  Report Type: 
  Country: None (occurrence: None)
  Receive Date: 20070502
  Receipt Date: 20070327
  Transmission Date: 20071010
  Serious: Yes (Other)
  Sender: FDA-Public Use
  Company Number: 35528

PATIENT
  Sex: Female
  Weight: 86.1834 kg

DRUGS (3)
  1. OCTREOTIDE ACETATE [Suspect]
     Indication: PITUITARY TUMOUR
     Dosage: 175-200 MCG/X2/DAILY
  2. STEROID REPLACEMENT [Concomitant]
  3. BONIVA [Concomitant]

REACTIONS (1)
  - DRUG INEFFECTIVE [None]
